FAERS Safety Report 25090695 (Version 1)
Quarter: 2025Q1

REPORT INFORMATION
  Report Type: Spontaneous
  Country: FR (occurrence: FR)
  Receive Date: 20250318
  Receipt Date: 20250318
  Transmission Date: 20250409
  Serious: Yes (Other)
  Sender: PFIZER
  Company Number: FR-PFIZER INC-PV202500032215

PATIENT
  Age: 4 Year
  Sex: Female

DRUGS (1)
  1. SOMATROGON [Suspect]
     Active Substance: SOMATROGON

REACTIONS (2)
  - Tonsillectomy [Unknown]
  - Ear, nose and throat infection [Unknown]
